FAERS Safety Report 9250556 (Version 4)
Quarter: 2013Q3

REPORT INFORMATION
  Report Type: Spontaneous
  Country: US (occurrence: US)
  Receive Date: 20130424
  Receipt Date: 20130905
  Transmission Date: 20140515
  Serious: Yes (Hospitalization, Other)
  Sender: FDA-Public Use
  Company Number: US-BAYER-2013-048191

PATIENT
  Age: 21 Year
  Sex: Female
  Weight: 43.99 kg

DRUGS (1)
  1. MIRENA [Suspect]
     Indication: CONTRACEPTION
     Dosage: 20 MCG/24HR, CONT
     Route: 015
     Dates: start: 20121115, end: 20130315

REACTIONS (8)
  - Genital haemorrhage [Recovered/Resolved]
  - Headache [Recovered/Resolved]
  - Abdominal distension [Recovered/Resolved]
  - Abdominal pain lower [Recovered/Resolved]
  - Unintentional medical device removal [None]
  - Menorrhagia [None]
  - Menstrual disorder [None]
  - Cholecystitis [None]
